FAERS Safety Report 5676700-2 (Version None)
Quarter: 2008Q1

REPORT INFORMATION
  Report Type: 
  Country: None (occurrence: None)
  Receive Date: 20080321
  Receipt Date: 20080321
  Transmission Date: 20080703
  Serious: Yes (Other)
  Sender: FDA-Public Use
  Company Number: None

PATIENT
  Sex: Male
  Weight: 29.0302 kg

DRUGS (1)
  1. SERTRALINE HCL [Suspect]
     Indication: ANXIETY DISORDER
     Dosage: 75MG 1X DAILY PO
     Route: 048
     Dates: start: 20070301, end: 20080320

REACTIONS (2)
  - ANXIETY [None]
  - PHARMACEUTICAL PRODUCT COMPLAINT [None]
